FAERS Safety Report 5002671-8 (Version None)
Quarter: 2006Q2

REPORT INFORMATION
  Report Type: 
  Country: None (occurrence: None)
  Receive Date: 20060510
  Receipt Date: 20060503
  Transmission Date: 20061013
  Serious: Yes (Other)
  Sender: FDA-Public Use
  Company Number: 2005172947

PATIENT
  Sex: Female

DRUGS (4)
  1. DILANTIN KAPSEAL [Suspect]
     Indication: CONVULSION
     Dosage: ORAL
     Route: 048
     Dates: end: 20041201
  2. DEPAKENE [Suspect]
     Indication: ILL-DEFINED DISORDER
     Dosage: ORAL
     Route: 048
     Dates: start: 19970101
  3. VITAMINS                  (VITAMINS) [Concomitant]
  4. FRISIUM              (CLOBAZAM) [Concomitant]

REACTIONS (9)
  - ALOPECIA [None]
  - BLOOD ALKALINE PHOSPHATASE ABNORMAL [None]
  - COMPUTERISED TOMOGRAM ABNORMAL [None]
  - GINGIVAL BLEEDING [None]
  - GINGIVAL HYPERTROPHY [None]
  - HEPATIC ENZYME INCREASED [None]
  - HERNIA [None]
  - LYMPHADENOPATHY [None]
  - SPLENOMEGALY [None]
